FAERS Safety Report 7103360-6 (Version None)
Quarter: 2010Q4

REPORT INFORMATION
  Report Type: 
  Country: None (occurrence: None)
  Receive Date: 20101115
  Receipt Date: 20101012
  Transmission Date: 20110411
  Serious: Yes (Other)
  Sender: FDA-Public Use
  Company Number: GB-NOVOPROD-317922

PATIENT
  Age: 71 Year
  Sex: Male

DRUGS (1)
  1. MIXTARD HUMAN 70/30 [Suspect]
     Indication: PRODUCT USED FOR UNKNOWN INDICATION
     Dosage: 400-800 UNITS
     Route: 042

REACTIONS (2)
  - ADVERSE EVENT [None]
  - PHYSICAL ASSAULT [None]
